FAERS Safety Report 6575643-X (Version None)
Quarter: 2010Q1

REPORT INFORMATION
  Report Type: 
  Country: None (occurrence: None)
  Receive Date: 20100208
  Receipt Date: 20100208
  Transmission Date: 20100710
  Serious: Yes (Life-Threatening, Hospitalization)
  Sender: FDA-Public Use
  Company Number: None

PATIENT
  Age: 41 Year
  Sex: Male
  Weight: 183.6 kg

DRUGS (1)
  1. LOVENOX [Suspect]
     Indication: PULMONARY EMBOLISM
     Dosage: 150MG BID SQ
     Route: 058
     Dates: start: 20100105, end: 20100111

REACTIONS (3)
  - CEREBRAL ARTERY EMBOLISM [None]
  - MYCOTIC ANEURYSM [None]
  - SUBARACHNOID HAEMORRHAGE [None]
